FAERS Safety Report 5106528-3 (Version None)
Quarter: 2006Q3

REPORT INFORMATION
  Report Type: 
  Country: None (occurrence: None)
  Receive Date: 20060918
  Receipt Date: 20060908
  Transmission Date: 20061208
  Serious: Yes (Other)
  Sender: FDA-Public Use
  Company Number: DE-JNJFOC-20060700036

PATIENT
  Age: 29 Year
  Sex: Female
  Weight: 83 kg

DRUGS (3)
  1. REMICADE [Suspect]
     Indication: TRANSMISSION OF DRUG VIA SEMEN
     Route: 042
  2. ISONIAZID [Concomitant]
     Indication: TRANSMISSION OF DRUG VIA SEMEN
     Route: 065
  3. FEMINON [Concomitant]

REACTIONS (4)
  - DRUG EXPOSURE DURING PREGNANCY [None]
  - PLACENTA PRAEVIA [None]
  - PREGNANCY [None]
  - TRANSMISSION OF DRUG VIA SEMEN [None]
